FAERS Safety Report 16460423 (Version 2)
Quarter: 2019Q3

REPORT INFORMATION
  Report Type: Report from Study
  Country: US (occurrence: US)
  Receive Date: 20190620
  Receipt Date: 20190702
  Transmission Date: 20191004
  Serious: Yes (Hospitalization)
  Sender: FDA-Public Use
  Company Number: US-EXELIXIS-CABO-19020793

PATIENT
  Sex: Female

DRUGS (2)
  1. CABOMETYX [Suspect]
     Active Substance: CABOZANTINIB S-MALATE
     Indication: RENAL CANCER
     Dosage: 40 MG, QD (IN THE MORNING ON AN EMPTY STOMACH)
     Dates: start: 20190424
  2. CABOMETYX [Suspect]
     Active Substance: CABOZANTINIB S-MALATE
     Indication: METASTASES TO BONE

REACTIONS (10)
  - Fatigue [Unknown]
  - Urinary tract infection [Unknown]
  - Blood magnesium decreased [Unknown]
  - Body temperature increased [Unknown]
  - Weight decreased [Unknown]
  - Nausea [Recovering/Resolving]
  - Blood potassium decreased [Unknown]
  - Diarrhoea [Recovering/Resolving]
  - Blood pressure increased [Recovered/Resolved]
  - Oral pain [Unknown]

NARRATIVE: CASE EVENT DATE: 2019
